FAERS Safety Report 20557471 (Version 1)
Quarter: 2022Q1

REPORT INFORMATION
  Report Type: Report from Study
  Country: US (occurrence: None)
  Receive Date: 20220307
  Receipt Date: 20220307
  Transmission Date: 20220423
  Serious: Yes (Hospitalization)
  Sender: FDA-Public Use
  Company Number: US-ROCHE-3038488

PATIENT
  Age: 66 Year
  Sex: Male

DRUGS (5)
  1. POLATUZUMAB VEDOTIN [Suspect]
     Active Substance: POLATUZUMAB VEDOTIN
     Indication: Diffuse large B-cell lymphoma refractory
     Dosage: TREATMENT WAS GIVEN ON C2D3?LAST DATE OF STUDY DRUG RELATIVE TO THE START DATE OF THE AE: 07/OCT/202
     Route: 065
     Dates: start: 20210915
  2. RITUXIMAB [Suspect]
     Active Substance: RITUXIMAB
     Indication: Diffuse large B-cell lymphoma refractory
     Dosage: LAST DATE OF STUDY DRUG RELATIVE TO THE START DATE OF THE AE: 07/OCT/2021
     Route: 065
     Dates: start: 20210915
  3. IFOSFAMIDE [Suspect]
     Active Substance: IFOSFAMIDE
     Indication: Diffuse large B-cell lymphoma refractory
     Dosage: LAST DATE OF STUDY DRUG RELATIVE TO THE START DATE OF THE AE: 07/OCT/2021
     Route: 065
     Dates: start: 20210915
  4. CARBOPLATIN [Suspect]
     Active Substance: CARBOPLATIN
     Indication: Diffuse large B-cell lymphoma refractory
     Dosage: LAST DATE OF STUDY DRUG RELATIVE TO THE START DATE OF THE AE: 07/OCT/2021
     Route: 065
     Dates: start: 20210915
  5. ETOPOSIDE [Suspect]
     Active Substance: ETOPOSIDE
     Indication: Diffuse large B-cell lymphoma refractory
     Dosage: LAST DATE OF STUDY DRUG RELATIVE TO THE START DATE OF THE AE: 07/OCT/2021
     Route: 065
     Dates: start: 20210915

REACTIONS (1)
  - Hypotension [Recovered/Resolved]

NARRATIVE: CASE EVENT DATE: 20211008
